FAERS Safety Report 19785624 (Version 4)
Quarter: 2021Q4

REPORT INFORMATION
  Report Type: Spontaneous
  Country: ES (occurrence: ES)
  Receive Date: 20210903
  Receipt Date: 20211012
  Transmission Date: 20220303
  Serious: Yes (Hospitalization, Other)
  Sender: FDA-Public Use
  Company Number: ES-SA-2020SA344351

PATIENT
  Age: 66 Year
  Sex: Male

DRUGS (6)
  1. TAMSULOSIN HYDROCHLORIDE [Interacting]
     Active Substance: TAMSULOSIN HYDROCHLORIDE
     Indication: Urinary retention
     Dosage: 0.4 MG, QD
  2. VORICONAZOLE [Interacting]
     Active Substance: VORICONAZOLE
     Indication: Bronchopulmonary aspergillosis
     Dosage: LOADING DOSE
     Route: 065
  3. VORICONAZOLE [Interacting]
     Active Substance: VORICONAZOLE
     Indication: Pulmonary cavitation
     Dosage: 200 MG, Q12H (SUBSEQUENT MAINTENANCE)
     Route: 065
  4. AMPHOTERICIN B [Concomitant]
     Active Substance: AMPHOTERICIN B
     Indication: Pulmonary cavitation
     Dosage: 50 MG, THRICE WEEKLY (NEBULISED AMPHOTERICIN B)
     Route: 055
  5. AMPHOTERICIN B [Concomitant]
     Active Substance: AMPHOTERICIN B
     Indication: Bronchopulmonary aspergillosis
  6. AMLODIPINE [Concomitant]
     Active Substance: AMLODIPINE BESYLATE
     Indication: Hypertension
     Dosage: 5 MG, QD

REACTIONS (5)
  - Hypotension [Recovering/Resolving]
  - Blood pressure decreased [Recovering/Resolving]
  - Drug interaction [Recovering/Resolving]
  - Drug level increased [Unknown]
  - Product use in unapproved indication [Unknown]
